FAERS Safety Report 4467299-7 (Version None)
Quarter: 2004Q4

REPORT INFORMATION
  Report Type: 
  Country: None (occurrence: None)
  Receive Date: 20041006
  Receipt Date: 20040927
  Transmission Date: 20050328
  Serious: Yes (Hospitalization, Disabling, Other)
  Sender: FDA-Public Use
  Company Number: GB-GLAXOSMITHKLINE-B0346453A

PATIENT
  Age: 81 Year
  Sex: Female

DRUGS (5)
  1. ZOFRAN [Suspect]
     Indication: ARTHROSCOPY
     Route: 042
     Dates: start: 20040909, end: 20040909
  2. ATENOLOL [Concomitant]
     Indication: HYPERTENSION
     Dosage: 25MG PER DAY
     Route: 048
  3. ASPIRIN [Concomitant]
     Indication: HYPERTENSION
     Dosage: 75MG PER DAY
     Route: 048
  4. PARACETAMOL [Concomitant]
     Indication: ARTHRALGIA
     Dosage: 500MG PER DAY
     Route: 048
  5. DICLOFENAC [Concomitant]
     Indication: ARTHRALGIA
     Dosage: 50MG PER DAY
     Route: 048

REACTIONS (3)
  - DYSKINESIA [None]
  - DYSTONIA [None]
  - JOINT INJURY [None]
